FAERS Safety Report 5826989-1 (Version None)
Quarter: 2008Q3

REPORT INFORMATION
  Report Type: 
  Country: None (occurrence: None)
  Receive Date: 20080730
  Receipt Date: 20080722
  Transmission Date: 20090109
  Serious: Yes (Death)
  Sender: FDA-Public Use
  Company Number: US-PURDUE-USA_2008_0033275

PATIENT
  Age: 56 Year
  Sex: Female

DRUGS (5)
  1. OXYCONTIN [Suspect]
     Indication: PAIN
     Dosage: 60 MG, Q12H
     Route: 048
     Dates: start: 20080404, end: 20080518
  2. OXYCODONE HCL [Concomitant]
     Indication: BREAKTHROUGH PAIN
     Dosage: 5 MG, UNK
  3. MEGACE [Concomitant]
     Indication: ANOREXIA
  4. MAGNESIUM OXIDE [Concomitant]
     Indication: HYPOMAGNESAEMIA
  5. DIFLUCAN [Concomitant]
     Indication: CANDIDIASIS

REACTIONS (2)
  - MALIGNANT NEOPLASM PROGRESSION [None]
  - NON-SMALL CELL LUNG CANCER [None]
